FAERS Safety Report 21705190 (Version 2)
Quarter: 2022Q4

REPORT INFORMATION
  Report Type: Spontaneous
  Country: CA (occurrence: CA)
  Receive Date: 20221209
  Receipt Date: 20221213
  Transmission Date: 20230113
  Serious: Yes (Hospitalization, Other)
  Sender: FDA-Public Use
  Company Number: CA-CELLTRION INC.-2022CA020656

PATIENT

DRUGS (3)
  1. INFLECTRA [Suspect]
     Active Substance: INFLIXIMAB-DYYB
     Indication: Ankylosing spondylitis
     Dosage: 500MG WEEKS 0,2,6 THEN Q 8 WEEKS
     Route: 042
     Dates: start: 20220810, end: 20220922
  2. INFLECTRA [Suspect]
     Active Substance: INFLIXIMAB-DYYB
     Dosage: 500MG WEEKS 0,2,6 THEN Q 8 WEEKS
     Route: 042
     Dates: start: 20220922
  3. INFLECTRA [Suspect]
     Active Substance: INFLIXIMAB-DYYB
     Dosage: 500MG WEEKS 0,2,6 THEN Q 8 WEEKS (PATIENT RECEIVED INFLECTRA IN-HOSPITAL)
     Route: 042
     Dates: start: 20221118

REACTIONS (7)
  - Hepatic enzyme increased [Unknown]
  - Hepatitis [Unknown]
  - Back pain [Unknown]
  - Pelvic pain [Unknown]
  - Arthralgia [Unknown]
  - Hepatic function abnormal [Unknown]
  - Fatigue [Unknown]

NARRATIVE: CASE EVENT DATE: 20220101
